FAERS Safety Report 6571286-2 (Version None)
Quarter: 2010Q1

REPORT INFORMATION
  Report Type: 
  Country: None (occurrence: None)
  Receive Date: 20100129
  Receipt Date: 20100115
  Transmission Date: 20100710
  Serious: Yes (Hospitalization)
  Sender: FDA-Public Use
  Company Number: 1000011474

PATIENT
  Age: 74 Year
  Sex: Female

DRUGS (7)
  1. ESCITALOPRAM OXALATE [Suspect]
     Dosage: 5 MG (5 MG, 1 IN 1 D), ORAL
     Route: 048
     Dates: start: 20060406, end: 20060414
  2. TEGRETOL [Suspect]
     Dosage: 400 MG (400 MG, 1 IN 1 D), ORAL, 600 MG (600 MG, 1 IN 1 D), ORAL
     Route: 048
     Dates: start: 20060202, end: 20060307
  3. TEGRETOL [Suspect]
     Dosage: 400 MG (400 MG, 1 IN 1 D), ORAL, 600 MG (600 MG, 1 IN 1 D), ORAL
     Route: 048
     Dates: start: 20060803
  4. ESIDRIX [Suspect]
     Dosage: 12.5 MG (12.5 MG, 1 IN 1 D), ORAL
     Route: 048
  5. SEROQUEL [Concomitant]
  6. XIMOVAN [Concomitant]
  7. LEVOTHYROXINE SODIUM [Concomitant]

REACTIONS (3)
  - DRUG INTERACTION [None]
  - HYPONATRAEMIA [None]
  - OVERDOSE [None]
